FAERS Safety Report 9058803 (Version 3)
Quarter: 2013Q3

REPORT INFORMATION
  Report Type: Report from Study
  Country: FR (occurrence: FR)
  Receive Date: 20130204
  Receipt Date: 20130701
  Transmission Date: 20140515
  Serious: Yes (Death, Hospitalization, Other)
  Sender: FDA-Public Use
  Company Number: FR-ACTELION-A-CH2013-78554

PATIENT
  Age: 73 Year
  Sex: Female
  Weight: 56 kg

DRUGS (12)
  1. TRACLEER [Suspect]
     Indication: SKIN ULCER
     Dosage: 125 MG, BID
     Route: 048
     Dates: start: 200211, end: 20121024
  2. TRACLEER [Suspect]
     Dosage: 62.5 MG, BID
     Route: 048
     Dates: start: 200210, end: 200211
  3. TRACLEER [Suspect]
     Dosage: UNK
     Route: 048
     Dates: start: 20010701
  4. AMLOR [Concomitant]
     Dosage: 5 MG, QD
  5. INEXIUM [Concomitant]
     Dosage: 40 UNK, QD
  6. KARDEGIC [Concomitant]
     Dosage: 75 UNK, QD
  7. SEREVENT [Concomitant]
  8. ZOPICLONE [Concomitant]
  9. ALPRAZOLAM [Concomitant]
  10. ALDACTAZINE [Concomitant]
     Dosage: 90 UNK, QD
  11. AMIODARONE [Concomitant]
     Dosage: 200 UNK, QD
  12. PREVISCAN [Concomitant]

REACTIONS (12)
  - Pulmonary sepsis [Fatal]
  - Pleurisy [Unknown]
  - Dyspnoea [Unknown]
  - Chills [Unknown]
  - Asthenia [Unknown]
  - Productive cough [Unknown]
  - Hyperhidrosis [Unknown]
  - Pleural effusion [Unknown]
  - Aortic valve stenosis [Unknown]
  - Aortic valve replacement [Unknown]
  - Atrial fibrillation [Unknown]
  - Pulmonary mass [Unknown]
